FAERS Safety Report 9296548 (Version 1)
Quarter: 2013Q2

REPORT INFORMATION
  Report Type: Spontaneous
  Country: DE (occurrence: DE)
  Receive Date: 20130517
  Receipt Date: 20130517
  Transmission Date: 20140414
  Serious: Yes (Hospitalization)
  Sender: FDA-Public Use
  Company Number: DE-ELI_LILLY_AND_COMPANY-DE201305001806

PATIENT
  Sex: Male

DRUGS (1)
  1. FORSTEO [Suspect]
     Indication: OSTEOPOROSIS
     Dosage: UNK, QD
     Route: 058
     Dates: start: 20120124, end: 201304

REACTIONS (4)
  - Cataract [Recovered/Resolved]
  - Visual impairment [Recovered/Resolved]
  - Muscle atrophy [Recovered/Resolved]
  - Dyspnoea [Recovered/Resolved]
